FAERS Safety Report 5496926-0 (Version None)
Quarter: 2007Q4

REPORT INFORMATION
  Report Type: 
  Country: None (occurrence: None)
  Receive Date: 20071025
  Receipt Date: 20071023
  Transmission Date: 20080405
  Serious: Yes (Hospitalization)
  Sender: FDA-Public Use
  Company Number: A0689137A

PATIENT
  Age: 42 Year
  Sex: Female

DRUGS (3)
  1. ALLI [Suspect]
     Dates: start: 20071008, end: 20071021
  2. SUDAFED 12 HOUR [Concomitant]
  3. VITAMINS [Concomitant]

REACTIONS (5)
  - BLOOD PRESSURE INCREASED [None]
  - DIARRHOEA [None]
  - DIZZINESS [None]
  - HYPERSENSITIVITY [None]
  - PANIC ATTACK [None]
